FAERS Safety Report 14752081 (Version 1)
Quarter: 2018Q2

REPORT INFORMATION
  Report Type: Spontaneous
  Country: US (occurrence: US)
  Receive Date: 20180412
  Receipt Date: 20180412
  Transmission Date: 20180711
  Serious: Yes (Other)
  Sender: FDA-Public Use
  Company Number: US-PFIZER INC-2018144861

PATIENT
  Age: 61 Year
  Sex: Female

DRUGS (1)
  1. CELEBREX [Suspect]
     Active Substance: CELECOXIB
     Dosage: 200 MG, UNK

REACTIONS (9)
  - Pruritus [Unknown]
  - Paralysis [Unknown]
  - Dysstasia [Unknown]
  - Abdominal pain [Unknown]
  - Nausea [Recovered/Resolved]
  - Asthenia [Unknown]
  - Acne [Unknown]
  - Movement disorder [Unknown]
  - Limb discomfort [Unknown]
